FAERS Safety Report 16570491 (Version 1)
Quarter: 2019Q3

REPORT INFORMATION
  Report Type: Spontaneous
  Country: US (occurrence: US)
  Receive Date: 20190715
  Receipt Date: 20190715
  Transmission Date: 20191004
  Serious: Yes (Hospitalization)
  Sender: FDA-Public Use
  Company Number: US-ROCHE-2353885

PATIENT
  Age: 14 Year
  Sex: Male

DRUGS (4)
  1. PULMOZYME [Suspect]
     Active Substance: DORNASE ALFA
     Indication: CYSTIC FIBROSIS
     Dosage: EVERY NIGHT AT BEDTIME
     Route: 055
     Dates: start: 20150424
  2. COLISTIMETHATE SODIUM. [Suspect]
     Active Substance: COLISTIMETHATE SODIUM
     Indication: CYSTIC FIBROSIS
     Dosage: 28 DAYS ON AND 28 DAYS OFF, ONGOING : UNKNOWN
     Route: 055
     Dates: start: 20171018
  3. COLISTIMETHATE SODIUM. [Suspect]
     Active Substance: COLISTIMETHATE SODIUM
     Dosage: ONGOING: UNKNOWN
     Route: 055
  4. AZTREONAM LYSINE [Suspect]
     Active Substance: AZTREONAM LYSINE
     Indication: CYSTIC FIBROSIS
     Dosage: ONGOING: YES
     Route: 055
     Dates: start: 20190305

REACTIONS (1)
  - Gastrostomy tube site complication [Unknown]

NARRATIVE: CASE EVENT DATE: 20190628
